FAERS Safety Report 14772769 (Version 1)
Quarter: 2020Q3

REPORT INFORMATION
  Report Type: Report from Study
  Country: CA (occurrence: CA)
  Receive Date: 20180418
  Receipt Date: 20180418
  Transmission Date: 20201105
  Serious: Yes (Hospitalization)
  Sender: FDA-Public Use
  Company Number: CA-ASTRAZENECA-2017SF17513

PATIENT
  Age: 65 Year
  Sex: Female

DRUGS (21)
  1. GEMCITABINE. [Suspect]
     Active Substance: GEMCITABINE
     Indication: NON-SMALL CELL LUNG CANCER
     Dosage: 1520 MG D1 AND D8, Q21 DAYS
     Route: 042
     Dates: start: 20171019, end: 20171116
  2. PREDNISONE. [Concomitant]
     Active Substance: PREDNISONE
     Indication: CLOSTRIDIAL COLLAGENASE PROCEDURE
     Route: 065
     Dates: start: 20171205, end: 20180122
  3. DURVALUMAB. [Suspect]
     Active Substance: DURVALUMAB
     Indication: NON-SMALL CELL LUNG CANCER
     Dosage: 1500 MG D1, Q21 DAYS (X 4 CYCLES), THEN Q28 DAYS
     Route: 042
     Dates: start: 20171019, end: 20171116
  4. CARBOPLATIN. [Suspect]
     Active Substance: CARBOPLATIN
     Dosage: 565 MG D1,Q21 DAYS
     Route: 042
     Dates: start: 20171019, end: 20171116
  5. CYCLOBENZAPRINE. [Concomitant]
     Active Substance: CYCLOBENZAPRINE
     Indication: TUMOUR PAIN
     Route: 065
     Dates: start: 20170712
  6. COLACE [Concomitant]
     Active Substance: DOCUSATE SODIUM
     Indication: CONSTIPATION PROPHYLAXIS
     Route: 065
     Dates: start: 20170712
  7. POLYSPORIN [Concomitant]
     Active Substance: BACITRACIN ZINC\POLYMYXIN B SULFATE
     Indication: RASH
     Route: 065
     Dates: start: 20171031, end: 20171104
  8. OTHER METHIMAZOLE [Concomitant]
     Indication: AUTOIMMUNE DISORDER
     Route: 065
     Dates: start: 20171118, end: 20180115
  9. SENOKOT [Concomitant]
     Active Substance: SENNOSIDES
     Indication: CONSTIPATION PROPHYLAXIS
     Route: 065
     Dates: start: 20170712
  10. M?ESLON [Concomitant]
     Active Substance: MORPHINE SULFATE
     Indication: TUMOUR PAIN
     Route: 065
     Dates: start: 20170907
  11. OTHER POLYHEXAMETHYLENE BIGUANIDE, PHMB [Concomitant]
     Indication: WOUND DEHISCENCE
     Route: 065
     Dates: start: 20171005, end: 20180305
  12. TREMELIMUMAB. [Suspect]
     Active Substance: TREMELIMUMAB
     Indication: NON-SMALL CELL LUNG CANCER
     Dosage: 75 MG D1, Q21 DAYS (X 4 CYCLES)
     Route: 042
     Dates: start: 20171019, end: 20171116
  13. PANTOPRAZOLE [Concomitant]
     Active Substance: PANTOPRAZOLE
     Indication: DYSPEPSIA
     Route: 065
     Dates: start: 20170712
  14. PREGABALIN. [Concomitant]
     Active Substance: PREGABALIN
     Indication: PAIN IN EXTREMITY
     Route: 065
     Dates: start: 20170719
  15. NAPROXEN. [Concomitant]
     Active Substance: NAPROXEN
     Indication: TUMOUR PAIN
     Route: 065
     Dates: start: 20170712
  16. OXYCODONE [Concomitant]
     Active Substance: OXYCODONE
     Indication: TUMOUR PAIN
     Route: 065
     Dates: start: 20170815
  17. LAX?A?DAY [Concomitant]
     Indication: CONSTIPATION PROPHYLAXIS
     Route: 065
     Dates: start: 20170821
  18. ONDANSETRON [Concomitant]
     Active Substance: ONDANSETRON
     Indication: PROPHYLAXIS
     Route: 065
     Dates: start: 20171019, end: 20180226
  19. DEXAMETHASONE. [Concomitant]
     Active Substance: DEXAMETHASONE
     Indication: PROPHYLAXIS
     Route: 065
     Dates: start: 20171019, end: 20180226
  20. STATEX (MORPHINE SULFATE) [Concomitant]
     Active Substance: MORPHINE SULFATE
     Indication: TUMOUR PAIN
     Route: 065
     Dates: start: 20170619
  21. ACETAMINOPHEN. [Concomitant]
     Active Substance: ACETAMINOPHEN
     Indication: TUMOUR PAIN
     Route: 065
     Dates: start: 20170712

REACTIONS (1)
  - Autoimmune disorder [Recovered/Resolved]

NARRATIVE: CASE EVENT DATE: 20171116
